FAERS Safety Report 10246661 (Version 2)
Quarter: 2015Q3

REPORT INFORMATION
  Report Type: Spontaneous
  Country: US (occurrence: US)
  Receive Date: 20140619
  Receipt Date: 20150717
  Transmission Date: 20151125
  Serious: Yes (Other)
  Sender: FDA-Public Use
  Company Number: US-SA-2014SA078783

PATIENT
  Age: 70 Year
  Sex: Male

DRUGS (4)
  1. PLAVIX [Suspect]
     Active Substance: CLOPIDOGREL BISULFATE
     Indication: CHEST PAIN
     Route: 048
     Dates: start: 20050706, end: 20061110
  2. ASPIRIN. [Concomitant]
     Active Substance: ASPIRIN
     Dates: start: 20050706, end: 20061011
  3. PLAVIX [Suspect]
     Active Substance: CLOPIDOGREL BISULFATE
     Indication: BLOOD PRESSURE INCREASED
     Route: 048
     Dates: start: 20050706, end: 20061110
  4. PLAVIX [Suspect]
     Active Substance: CLOPIDOGREL BISULFATE
     Indication: HEART RATE INCREASED
     Route: 048
     Dates: start: 20050706, end: 20061110

REACTIONS (5)
  - Haemoptysis [Unknown]
  - Haemorrhage [Unknown]
  - Multiple injuries [Unknown]
  - Asthenia [Unknown]
  - Dyspnoea [Unknown]

NARRATIVE: CASE EVENT DATE: 20061011
